FAERS Safety Report 21750354 (Version 1)
Quarter: 2022Q4

REPORT INFORMATION
  Report Type: Spontaneous
  Country: US (occurrence: US)
  Receive Date: 20221219
  Receipt Date: 20221219
  Transmission Date: 20230112
  Serious: No
  Sender: FDA-Public Use
  Company Number: US-UPSHER-SMITH LABORATORIES, LLC-2022USL00590

PATIENT
  Sex: Female

DRUGS (4)
  1. POTASSIUM CHLORIDE [Suspect]
     Active Substance: POTASSIUM CHLORIDE
     Indication: Blood potassium decreased
     Dosage: 20 MEQ, 3X/DAY
     Route: 048
  2. FUROSEMIDE [Concomitant]
     Active Substance: FUROSEMIDE
  3. ELIQUIS [Concomitant]
     Active Substance: APIXABAN
  4. METOLAZONE [Concomitant]
     Active Substance: METOLAZONE

REACTIONS (2)
  - Choking sensation [Recovered/Resolved]
  - Anxiety [Recovered/Resolved]
